FAERS Safety Report 7896868-7 (Version None)
Quarter: 2011Q4

REPORT INFORMATION
  Report Type: 
  Country: None (occurrence: None)
  Receive Date: 20111107
  Receipt Date: 20110509
  Transmission Date: 20120403
  Serious: Yes (Death)
  Sender: FDA-Public Use
  Company Number: JP-BAYER-2011-029834

PATIENT
  Age: 3 Year
  Sex: Female

DRUGS (3)
  1. NEXAVAR [Suspect]
     Dosage: 80 MG/M2, QD
     Route: 048
  2. NEXAVAR [Suspect]
     Indication: ACUTE MYELOID LEUKAEMIA
     Dosage: 140 MG/M2, QD
     Route: 048
     Dates: start: 20110316
  3. NEXAVAR [Suspect]
     Dosage: 240 MG/M2, QD
     Route: 048
     Dates: start: 20110328

REACTIONS (3)
  - ALOPECIA [None]
  - ACUTE MYELOID LEUKAEMIA [None]
  - BLOOD CHOLESTEROL INCREASED [None]
